FAERS Safety Report 10175145 (Version 1)
Quarter: 2014Q2

REPORT INFORMATION
  Report Type: Spontaneous
  Country: TW (occurrence: TW)
  Receive Date: 20140515
  Receipt Date: 20140515
  Transmission Date: 20141212
  Serious: Yes (Death, Hospitalization)
  Sender: FDA-Public Use
  Company Number: PHHY2014TW059110

PATIENT
  Age: 60 Year
  Sex: Female

DRUGS (5)
  1. CICLOSPORIN [Suspect]
     Indication: DERMATOMYOSITIS
     Dosage: 150 MG, PER DAY
  2. METHYLPREDNISOLONE [Suspect]
     Indication: DERMATOMYOSITIS
     Dosage: 1000 MG/DAY (FOR 3 DAYS)
  3. IMMUNOGLOBULIN I.V [Suspect]
     Indication: DERMATOMYOSITIS
     Dosage: 400 MG/KG (FOR 5 DAYS)
     Route: 042
  4. CYCLOPHOSPHAMIDE [Suspect]
     Indication: DERMATOMYOSITIS
     Dosage: 500 MG
  5. PREDNISOLONE [Suspect]
     Indication: DERMATOMYOSITIS
     Dosage: 60 MG, PER DAY

REACTIONS (4)
  - Gastrointestinal haemorrhage [Fatal]
  - Shock [Fatal]
  - Dyspnoea [Unknown]
  - Drug ineffective [Unknown]
